FAERS Safety Report 6576440-1 (Version None)
Quarter: 2010Q1

REPORT INFORMATION
  Report Type: 
  Country: None (occurrence: None)
  Receive Date: 20100210
  Receipt Date: 20100208
  Transmission Date: 20100710
  Serious: Yes (Death)
  Sender: FDA-Public Use
  Company Number: PHEH2009US14272

PATIENT
  Sex: Male

DRUGS (6)
  1. EXJADE [Suspect]
     Indication: MYELOFIBROSIS
     Dosage: 1875 MG DAILY
     Route: 048
     Dates: start: 20090101, end: 20091001
  2. COUMADIN [Concomitant]
     Indication: DEEP VEIN THROMBOSIS
     Dosage: VARIED DOSE
     Route: 048
     Dates: start: 20070101
  3. VALTREX [Concomitant]
     Indication: HERPES SIMPLEX
     Route: 048
  4. PREDNISONE [Concomitant]
     Dosage: 5 MG, UNK
     Route: 048
  5. LASIX [Concomitant]
     Dosage: VARIED
     Route: 048
  6. PROCRIT [Concomitant]
     Dosage: 40,000 UNITS SQ

REACTIONS (8)
  - ANAEMIA [None]
  - HEPATIC FAILURE [None]
  - HYPOPHAGIA [None]
  - MALIGNANT NEOPLASM PROGRESSION [None]
  - PLEURAL EFFUSION [None]
  - RENAL FAILURE [None]
  - RESPIRATORY FAILURE [None]
  - THROMBOCYTOPENIA [None]
